FAERS Safety Report 8622299-8 (Version None)
Quarter: 2012Q3

REPORT INFORMATION
  Report Type: 
  Country: None (occurrence: None)
  Receive Date: 20120827
  Receipt Date: 20120817
  Transmission Date: 20120928
  Serious: Yes (Hospitalization, Other)
  Sender: FDA-Public Use
  Company Number: AU-BIOGENIDEC-2012BI032273

PATIENT
  Age: 48 Year
  Sex: Female

DRUGS (6)
  1. MIRTAZAPINE [Concomitant]
     Indication: DEPRESSION
  2. CITALOPRAM HYDROBROMIDE [Concomitant]
     Indication: DEPRESSION
  3. SAME (S-ADENOSYL METHIONINE) [Concomitant]
     Indication: DEPRESSION
  4. BACLOFEN [Concomitant]
     Indication: MUSCLE SPASMS
  5. TYSABRI [Suspect]
     Indication: MULTIPLE SCLEROSIS
     Route: 042
     Dates: start: 20100101
  6. LAMOTRIGINE [Concomitant]
     Indication: DEPRESSION

REACTIONS (1)
  - PROGRESSIVE MULTIFOCAL LEUKOENCEPHALOPATHY [None]
